FAERS Safety Report 5470088-8 (Version None)
Quarter: 2007Q3

REPORT INFORMATION
  Report Type: 
  Country: None (occurrence: None)
  Receive Date: 20070927
  Receipt Date: 20070917
  Transmission Date: 20080115
  Serious: Yes (Other)
  Sender: FDA-Public Use
  Company Number: US-PFIZER INC-2007077069

PATIENT
  Sex: Female

DRUGS (3)
  1. NIFEDIPINE [Suspect]
  2. HYDRALAZINE HCL [Suspect]
  3. CLONIDINE [Suspect]

REACTIONS (1)
  - HYPERTENSION [None]
